FAERS Safety Report 8576965-3 (Version None)
Quarter: 2012Q3

REPORT INFORMATION
  Report Type: 
  Country: None (occurrence: None)
  Receive Date: 20120807
  Receipt Date: 20120723
  Transmission Date: 20120928
  Serious: Yes (Hospitalization)
  Sender: FDA-Public Use
  Company Number: US-WATSON-2012-13407

PATIENT
  Age: 62 Year
  Sex: Female

DRUGS (2)
  1. PACLITAXEL [Suspect]
     Indication: OVARIAN CANCER
     Dosage: UNK
     Route: 065
  2. CARBOPLATIN [Suspect]
     Indication: OVARIAN CANCER
     Dosage: 6 CYCLES
     Route: 065

REACTIONS (2)
  - ENDOCARDITIS NONINFECTIVE [None]
  - CEREBROVASCULAR ACCIDENT [None]
